FAERS Safety Report 9248227 (Version 2)
Quarter: 2014Q1

REPORT INFORMATION
  Report Type: Spontaneous
  Country: US (occurrence: None)
  Receive Date: 20130305
  Receipt Date: 20140306
  Transmission Date: 20141002
  Serious: Yes (Hospitalization)
  Sender: FDA-Public Use
  Company Number: 163-21880-12060677

PATIENT
  Age: 85 Year
  Sex: Female

DRUGS (9)
  1. REVLIMID [Suspect]
     Indication: PLASMA CELL MYELOMA
     Dosage: 25 MG, 21 IN 21 D, PO
     Route: 048
     Dates: start: 20120507
  2. DEXAMETHASONE [Concomitant]
  3. ADVAIR DISKUS (SERETIDE MITE) [Concomitant]
  4. CALCIUM CARBONATE (CALCIUM CARBONATE) [Concomitant]
  5. CLONIDINE HCL (CLONIDINE HYDROCHLORIDE) [Concomitant]
  6. LIPITOR (ATORVASTATIN) [Concomitant]
  7. METOPROLOL SUCCINATE (METOPROLOL SUCCINATE) [Concomitant]
  8. SINGULAIR (MONTELUKAST SODIUM) [Concomitant]
  9. VENTOLIN HFA (SALBUTAMOL SULFATE) [Concomitant]

REACTIONS (1)
  - Renal failure [None]
